FAERS Safety Report 5866098-9 (Version None)
Quarter: 2008Q3

REPORT INFORMATION
  Report Type: 
  Country: None (occurrence: None)
  Receive Date: 20080829
  Receipt Date: 20080825
  Transmission Date: 20090109
  Serious: Yes (Other)
  Sender: FDA-Public Use
  Company Number: DE-AMGEN-UK280591

PATIENT
  Sex: Male
  Weight: 110 kg

DRUGS (6)
  1. PANITUMUMAB [Suspect]
     Indication: COLORECTAL CANCER
     Route: 042
     Dates: start: 20080305, end: 20080305
  2. MINOCYCLINE HCL [Concomitant]
     Dates: start: 20080515
  3. FUCIDINE CAP [Concomitant]
     Dates: start: 20080515
  4. FOLINIC ACID [Concomitant]
     Dates: start: 20080305
  5. FLUOROURACIL [Concomitant]
     Dates: start: 20080305
  6. IRINOTECAN HCL [Concomitant]
     Dates: start: 20080305

REACTIONS (1)
  - DEEP VEIN THROMBOSIS [None]
